FAERS Safety Report 4369143-5 (Version None)
Quarter: 2004Q2

REPORT INFORMATION
  Report Type: 
  Country: None (occurrence: None)
  Receive Date: 20040601
  Receipt Date: 20040601
  Transmission Date: 20050107
  Serious: Yes (Life-Threatening, Disabling)
  Sender: FDA-Public Use
  Company Number: None

PATIENT
  Age: 46 Year
  Sex: Male
  Weight: 72.5755 kg

DRUGS (1)
  1. LIPITOR [Suspect]
     Indication: BLOOD CHOLESTEROL INCREASED
     Dosage: 10 MILGRAMS  1 TIME A DAY
     Dates: start: 20010801

REACTIONS (10)
  - AMNESIA [None]
  - ASTHENIA [None]
  - BURNING SENSATION [None]
  - CONVULSION [None]
  - DISTURBANCE IN ATTENTION [None]
  - DYSSTASIA [None]
  - DYSURIA [None]
  - FEELING ABNORMAL [None]
  - PAIN [None]
  - PENIS DISORDER [None]
